FAERS Safety Report 12797386 (Version 2)
Quarter: 2016Q4

REPORT INFORMATION
  Report Type: Report from Study
  Country: FI (occurrence: FI)
  Receive Date: 20160929
  Receipt Date: 20161017
  Transmission Date: 20170207
  Serious: Yes (Other)
  Sender: FDA-Public Use
  Company Number: FI-TAKEDA-2016TUS017348

PATIENT
  Sex: Female

DRUGS (1)
  1. VORTIOXETINE [Suspect]
     Active Substance: VORTIOXETINE
     Indication: DEPRESSION
     Dosage: UNK
     Route: 065

REACTIONS (6)
  - Disturbance in attention [Unknown]
  - Fatigue [Unknown]
  - Decreased interest [Unknown]
  - Suicidal ideation [Unknown]
  - Sleep disorder [Unknown]
  - Appetite disorder [Unknown]
